FAERS Safety Report 18304159 (Version 1)
Quarter: 2020Q3

REPORT INFORMATION
  Report Type: Report from Study
  Country: NL (occurrence: NL)
  Receive Date: 20200923
  Receipt Date: 20200923
  Transmission Date: 20201103
  Serious: Yes (Other)
  Sender: FDA-Public Use
  Company Number: NL-MYLANLABS-2019M1119941

PATIENT
  Sex: Female

DRUGS (1)
  1. GLATIRAMEERACETAAT MYLAN 40 MG/ML [Suspect]
     Active Substance: GLATIRAMER ACETATE
     Indication: RELAPSING-REMITTING MULTIPLE SCLEROSIS
     Dosage: 3.00 X PER WEEK
     Route: 058

REACTIONS (10)
  - Limb discomfort [Not Recovered/Not Resolved]
  - Multiple sclerosis relapse [Unknown]
  - Osteoarthritis [Not Recovered/Not Resolved]
  - Heart rate increased [Unknown]
  - Asthenia [Unknown]
  - Maternal exposure during breast feeding [Unknown]
  - Bone marrow oedema [Unknown]
  - Injection site erythema [Not Recovered/Not Resolved]
  - Injection site mass [Not Recovered/Not Resolved]
  - Injection site reaction [Not Recovered/Not Resolved]
